FAERS Safety Report 5622855-5 (Version None)
Quarter: 2008Q1

REPORT INFORMATION
  Report Type: 
  Country: None (occurrence: None)
  Receive Date: 20080208
  Receipt Date: 20080208
  Transmission Date: 20080703
  Serious: Yes (Hospitalization)
  Sender: FDA-Public Use
  Company Number: None

PATIENT
  Age: 55 Year
  Sex: Female
  Weight: 59.9 kg

DRUGS (1)
  1. BEVACIZUMAB [Suspect]
     Indication: PANCREATIC CARCINOMA METASTATIC
     Dosage: 10MG/KG DAYS 1 AND 15 IV, OVER 30 MIN.
     Route: 042
     Dates: start: 20071217

REACTIONS (3)
  - DISEASE PROGRESSION [None]
  - PULMONARY EMBOLISM [None]
  - THROMBOCYTOPENIA [None]
